FAERS Safety Report 23196978 (Version 1)
Quarter: 2023Q4

REPORT INFORMATION
  Report Type: Spontaneous
  Country: US (occurrence: US)
  Receive Date: 20231117
  Receipt Date: 20231117
  Transmission Date: 20240110
  Serious: Yes (Death, Other)
  Sender: FDA-Public Use
  Company Number: US-BRISTOL-MYERS SQUIBB COMPANY-2023-164768

PATIENT
  Age: 44 Year
  Sex: Female

DRUGS (2)
  1. REVLIMID [Suspect]
     Active Substance: LENALIDOMIDE
     Indication: Plasma cell myeloma
     Dosage: PRESCRIBED 15MG CAPSULES IN DEC2022 AND DISPENSED 21. FREQ : DISPENSED 21 CAPSULES WITH EACH PRESCRI
     Dates: start: 2022
  2. REVLIMID [Suspect]
     Active Substance: LENALIDOMIDE
     Dosage: 25MG PRESCRIBED WITH 21 CAPSULES DISPENSED EACH TIME INOCT2023 AND NOV2023. FREQ : DISPENSED 21 CAPS
     Dates: start: 2023

REACTIONS (1)
  - Death [Fatal]

NARRATIVE: CASE EVENT DATE: 20230123
